FAERS Safety Report 4567948-9 (Version None)
Quarter: 2005Q1

REPORT INFORMATION
  Report Type: 
  Country: None (occurrence: None)
  Receive Date: 20050202
  Receipt Date: 20040923
  Transmission Date: 20050727
  Serious: No
  Sender: FDA-Public Use
  Company Number: US-GLAXOSMITHKLINE-A0527113A

PATIENT
  Sex: Female

DRUGS (3)
  1. NAVELBINE [Suspect]
     Indication: BREAST CANCER
     Route: 042
  2. PAIN MEDICATIONS [Concomitant]
  3. UNKNOWN MEDICATION [Concomitant]
     Indication: CONVULSION PROPHYLAXIS

REACTIONS (1)
  - HEADACHE [None]
